FAERS Safety Report 10223052 (Version 1)
Quarter: 2014Q2

REPORT INFORMATION
  Report Type: Report from Study
  Country: US (occurrence: US)
  Receive Date: 20140607
  Receipt Date: 20140607
  Transmission Date: 20141212
  Serious: Yes (Hospitalization)
  Sender: FDA-Public Use
  Company Number: PHEH2014US011295

PATIENT
  Sex: Female
  Weight: 68.93 kg

DRUGS (23)
  1. ZOMETA [Suspect]
     Dosage: 4 MG, UNK
  2. VITAMIN A [Concomitant]
     Dosage: UNK UKN, UNK
  3. VITAMIN D2 [Concomitant]
     Dosage: 2000 U, UNK
  4. PROTONIX [Concomitant]
     Dosage: 20 MG, UNK
  5. REVLIMID [Concomitant]
     Dosage: 5 MG, UNK
  6. LEXAPRO [Concomitant]
     Dosage: 5 MG, UNK
  7. GABAPENTIN [Concomitant]
     Dosage: 100 MG, UNK
  8. FENTANYL [Concomitant]
     Dosage: 12 UG, PER HR
  9. DIAZEPAM [Concomitant]
     Dosage: 2 MG, UNK
  10. DILAUDID [Concomitant]
     Dosage: 2 MG, UNK
  11. ASA [Concomitant]
     Dosage: 325 MG, UNK
  12. FISH OIL [Concomitant]
     Dosage: UNK UKN, UNK
  13. B COMPLEX PLUS C [Concomitant]
     Dosage: UNK UKN, UNK
  14. VITAMIN D3 [Concomitant]
     Dosage: 400 U, UNK
  15. CENTRUM [Concomitant]
     Dosage: UNK UKN, UNK
  16. SENOKOTXTRA [Concomitant]
     Dosage: 17 MG, UNK
  17. COLACE [Concomitant]
     Dosage: 100 MG, UNK
  18. MIRALAX [Concomitant]
     Dosage: 3350 NF
  19. REFRESH P.M. [Concomitant]
     Dosage: UNK UKN, UNK
     Route: 047
  20. PROBIOTICS [Concomitant]
     Dosage: UNK UKN, UNK
  21. LATANOPROST [Concomitant]
     Dosage: 0.005 %, UNK
  22. MUCINEX [Concomitant]
     Dosage: 1200 MG, UNK
  23. PROAIR HFA [Concomitant]
     Dosage: UNK UKN, UNK

REACTIONS (2)
  - Pneumonia bacterial [Unknown]
  - Dyspnoea [Unknown]
